FAERS Safety Report 8357152-0 (Version None)
Quarter: 2012Q2

REPORT INFORMATION
  Report Type: 
  Country: None (occurrence: None)
  Receive Date: 20120514
  Receipt Date: 20120502
  Transmission Date: 20120825
  Serious: Yes (Hospitalization)
  Sender: FDA-Public Use
  Company Number: FR-ROCHE-1065252

PATIENT
  Sex: Male

DRUGS (8)
  1. METFORMIN HCL [Concomitant]
  2. BISOPROLOL FUMARATE [Concomitant]
  3. METOPROLOL TARTRATE [Concomitant]
  4. FERROSTRANE [Concomitant]
  5. XELODA [Suspect]
     Indication: RECTAL NEOPLASM
     Route: 048
     Dates: start: 20120314, end: 20120322
  6. AVODART [Concomitant]
  7. REPAGLINIDE [Concomitant]
  8. NICARDIPINE HCL [Concomitant]

REACTIONS (2)
  - PROSTATITIS [None]
  - BACTERIAL SEPSIS [None]
